FAERS Safety Report 7362045-1 (Version None)
Quarter: 2011Q1

REPORT INFORMATION
  Report Type: 
  Country: None (occurrence: None)
  Receive Date: 20110318
  Receipt Date: 20110308
  Transmission Date: 20110831
  Serious: Yes (Hospitalization)
  Sender: FDA-Public Use
  Company Number: US-JNJFOC-20080205087

PATIENT
  Sex: Male
  Weight: 34.9 kg

DRUGS (4)
  1. REMICADE [Suspect]
     Indication: CROHN'S DISEASE
     Route: 042
  2. MERCAPTOPURINE [Concomitant]
  3. MESALAMINE [Concomitant]
  4. REMICADE [Suspect]
     Dosage: TOTAL 3 DOSES
     Route: 042

REACTIONS (1)
  - ILEAL STENOSIS [None]
